FAERS Safety Report 8101638-0 (Version None)
Quarter: 2012Q1

REPORT INFORMATION
  Report Type: 
  Country: None (occurrence: None)
  Receive Date: 20120129
  Receipt Date: 20111012
  Transmission Date: 20120608
  Serious: No
  Sender: FDA-Public Use
  Company Number: US-ABBOTT-11P-163-0863335-00

PATIENT
  Sex: Female

DRUGS (14)
  1. ENFOLAST [Concomitant]
     Indication: PRODUCT USED FOR UNKNOWN INDICATION
  2. VIIBRYD [Concomitant]
     Indication: PRODUCT USED FOR UNKNOWN INDICATION
  3. CYMBALTA [Concomitant]
     Indication: DEPRESSION
  4. HYDROXYCHLOROQUINE SULFATE [Concomitant]
     Indication: RHEUMATOID ARTHRITIS
  5. METHOTREXATE [Concomitant]
     Indication: RHEUMATOID ARTHRITIS
  6. HUMIRA [Suspect]
     Indication: RHEUMATOID ARTHRITIS
     Dates: start: 20111004
  7. GABAPENTIN [Concomitant]
     Indication: RHEUMATOID ARTHRITIS
     Dosage: JEJUNOSTOMY
  8. REQUIP [Concomitant]
     Indication: RESTLESS LEGS SYNDROME
  9. ROPINIROLE [Concomitant]
     Indication: PRODUCT USED FOR UNKNOWN INDICATION
     Dosage: HCL
  10. CYMBALTA [Concomitant]
     Indication: PAIN
  11. CELEBREX [Concomitant]
     Indication: RHEUMATOID ARTHRITIS
  12. PREDNISONE TAB [Concomitant]
     Indication: RHEUMATOID ARTHRITIS
  13. FOLIC ACID [Concomitant]
     Indication: RHEUMATOID ARTHRITIS
  14. FOLIC ACID [Concomitant]
     Indication: PROPHYLAXIS

REACTIONS (4)
  - GLOSSITIS [None]
  - TOOTH FRACTURE [None]
  - CONTUSION [None]
  - SWELLING [None]
